FAERS Safety Report 6314001-X (Version None)
Quarter: 2009Q3

REPORT INFORMATION
  Report Type: 
  Country: None (occurrence: None)
  Receive Date: 20090818
  Receipt Date: 20090811
  Transmission Date: 20100115
  Serious: Yes (Other)
  Sender: FDA-Public Use
  Company Number: PHEH2009US09219

PATIENT
  Sex: Male

DRUGS (3)
  1. EXFORGE [Suspect]
  2. LOTREL [Suspect]
  3. ZELCOR [Concomitant]

REACTIONS (5)
  - DIZZINESS [None]
  - EYE SWELLING [None]
  - HYPERSENSITIVITY [None]
  - OROPHARYNGEAL PAIN [None]
  - SWOLLEN TONGUE [None]
